FAERS Safety Report 18599601 (Version 2)
Quarter: 2022Q2

REPORT INFORMATION
  Report Type: Spontaneous
  Country: CO (occurrence: CO)
  Receive Date: 20201210
  Receipt Date: 20220624
  Transmission Date: 20220721
  Serious: Yes (Life-Threatening, Hospitalization, Other)
  Sender: FDA-Public Use
  Company Number: CO-VIIV HEALTHCARE LIMITED-CO2020AMR243071

PATIENT

DRUGS (1)
  1. TRIUMEQ [Suspect]
     Active Substance: ABACAVIR SULFATE\DOLUTEGRAVIR SODIUM\LAMIVUDINE
     Indication: HIV infection
     Dosage: UNK, 50/600/300 MG
     Route: 048

REACTIONS (2)
  - Transaminases increased [Recovered/Resolved]
  - Drug hypersensitivity [Recovered/Resolved]
